FAERS Safety Report 17911012 (Version 2)
Quarter: 2020Q2

REPORT INFORMATION
  Report Type: Spontaneous
  Country: IT (occurrence: IT)
  Receive Date: 20200618
  Receipt Date: 20200626
  Transmission Date: 20200714
  Serious: Yes (Other)
  Sender: FDA-Public Use
  Company Number: IT-AMGEN-ITASP2020092939

PATIENT
  Age: 74 Year
  Sex: Female

DRUGS (7)
  1. VISMODEGIB. [Concomitant]
     Active Substance: VISMODEGIB
     Indication: BASAL CELL CARCINOMA
     Dosage: 150 MILLIGRAM, QD
     Route: 048
     Dates: start: 201708
  2. VITAMIN D [COLECALCIFEROL] [Concomitant]
     Active Substance: CHOLECALCIFEROL
     Dosage: 50,000 UL, QMO
  3. CALCIUM CARBONATE. [Concomitant]
     Active Substance: CALCIUM CARBONATE
     Dosage: 1000 MILLIGRAM, QD
  4. VISMODEGIB. [Concomitant]
     Active Substance: VISMODEGIB
     Indication: METASTASES TO LYMPH NODES
     Dosage: 150 MILLIGRAM, QOD
     Route: 048
     Dates: start: 201708
  5. VITAMIN D [COLECALCIFEROL] [Concomitant]
     Active Substance: CHOLECALCIFEROL
     Indication: VITAMIN D DECREASED
     Dosage: 50,000 UL, QWK
  6. PROLIA [Suspect]
     Active Substance: DENOSUMAB
     Indication: OSTEOPOROSIS
     Dosage: UNK
     Route: 058
     Dates: start: 2018
  7. ALENDRONATE [Concomitant]
     Active Substance: ALENDRONATE SODIUM
     Indication: OSTEOPOROSIS
     Dosage: 70 MILLIGRAM, QWK
     Route: 048

REACTIONS (1)
  - Metastases to lymph nodes [Recovering/Resolving]

NARRATIVE: CASE EVENT DATE: 201805
